FAERS Safety Report 23955166 (Version 1)
Quarter: 2024Q2

REPORT INFORMATION
  Report Type: Spontaneous
  Country: US (occurrence: US)
  Receive Date: 20240610
  Receipt Date: 20240610
  Transmission Date: 20240715
  Serious: No
  Sender: FDA-Public Use
  Company Number: US-IPSEN Group, Research and Development-2024-10955

PATIENT
  Age: 87 Year
  Sex: Female
  Weight: 57 kg

DRUGS (14)
  1. TAZVERIK [Suspect]
     Active Substance: TAZEMETOSTAT HYDROBROMIDE
     Indication: Follicular lymphoma
     Dosage: 600 MG TWICE DAILY
     Route: 048
     Dates: start: 20240522
  2. ACYCLOVIR [Concomitant]
     Active Substance: ACYCLOVIR
  3. ALBUTEROL NEB SOL [Concomitant]
  4. ALPRAZOLAM [Concomitant]
     Active Substance: ALPRAZOLAM
  5. CLOPIDOGREL [Concomitant]
     Active Substance: CLOPIDOGREL BISULFATE
  6. PRAVASTATIN [Concomitant]
     Active Substance: PRAVASTATIN
  7. BACTRIM [Concomitant]
     Active Substance: SULFAMETHOXAZOLE\TRIMETHOPRIM
  8. TRAMADOL [Concomitant]
     Active Substance: TRAMADOL\TRAMADOL HYDROCHLORIDE
  9. TRICOR [Concomitant]
     Active Substance: FENOFIBRATE
  10. ANORO ELLIPTA [Concomitant]
     Active Substance: UMECLIDINIUM BROMIDE\VILANTEROL TRIFENATATE
  11. CALCIUM\VITAMIN D [Concomitant]
     Active Substance: CALCIUM\VITAMIN D
  12. FISH OIL [Concomitant]
     Active Substance: FISH OIL
  13. MUCINEX [Concomitant]
     Active Substance: GUAIFENESIN
  14. SENOKOT [Concomitant]
     Active Substance: SENNOSIDES

REACTIONS (1)
  - Visual impairment [Not Recovered/Not Resolved]
